FAERS Safety Report 16945328 (Version 1)
Quarter: 2019Q4

REPORT INFORMATION
  Report Type: Spontaneous
  Country: PT (occurrence: PT)
  Receive Date: 20191022
  Receipt Date: 20191022
  Transmission Date: 20200122
  Serious: Yes (Other)
  Sender: FDA-Public Use
  Company Number: PT-GLAXOSMITHKLINE-PT2019EME187351

PATIENT

DRUGS (1)
  1. VOLTAREN EMULGELEX [Suspect]
     Active Substance: DICLOFENAC DIETHYLAMINE
     Indication: SPINAL DISORDER
     Dosage: UNK,
     Dates: start: 20191013

REACTIONS (3)
  - Cerebrovascular accident [Unknown]
  - Wrong technique in product usage process [Unknown]
  - Drug ineffective [Unknown]
